FAERS Safety Report 6990871-7 (Version None)
Quarter: 2010Q3

REPORT INFORMATION
  Report Type: 
  Country: None (occurrence: None)
  Receive Date: 20100916
  Receipt Date: 20080905
  Transmission Date: 20110219
  Serious: Yes (Other)
  Sender: FDA-Public Use
  Company Number: US-WYE-H04174408

PATIENT
  Sex: Female

DRUGS (4)
  1. PREMARIN [Suspect]
     Indication: HORMONE REPLACEMENT THERAPY
  2. CYCRIN [Suspect]
     Indication: HORMONE REPLACEMENT THERAPY
  3. MENEST [Suspect]
     Indication: HORMONE REPLACEMENT THERAPY
  4. PROVERA [Suspect]
     Indication: HORMONE REPLACEMENT THERAPY

REACTIONS (8)
  - ABDOMINAL PAIN [None]
  - ALOPECIA [None]
  - BONE PAIN [None]
  - BREAST CANCER [None]
  - HEPATIC STEATOSIS [None]
  - HYPOAESTHESIA [None]
  - MYALGIA [None]
  - WEIGHT INCREASED [None]
